FAERS Safety Report 9194327 (Version 2)
Quarter: 2013Q2

REPORT INFORMATION
  Report Type: Spontaneous
  Country: US (occurrence: US)
  Receive Date: 20130325
  Receipt Date: 20130508
  Transmission Date: 20140414
  Serious: Yes (Other)
  Sender: FDA-Public Use
  Company Number: US-RB-051331-13

PATIENT
  Age: 1 Day
  Sex: Male
  Weight: 3.51 kg

DRUGS (7)
  1. SUBUTEX [Suspect]
     Route: 064
     Dates: start: 20111123, end: 20111226
  2. SUBUTEX [Suspect]
     Route: 064
     Dates: start: 20111227, end: 20120831
  3. SUBUTEX [Suspect]
     Indication: DRUG DEPENDENCE
     Route: 063
     Dates: start: 20120831
  4. NEONATAL VITAMINS [Suspect]
     Indication: MEDICAL DIET
     Dosage: DOSING DETAILS UNKNOWN
     Route: 064
     Dates: start: 20111227, end: 20120831
  5. NICOTINE [Suspect]
     Indication: PRODUCT USED FOR UNKNOWN INDICATION
     Dosage: 1 CIGARETTE PER WEEK
     Route: 064
     Dates: start: 20111123, end: 20120831
  6. NICOTINE [Suspect]
     Dosage: 1 CIGARETTE PER WEEK
     Route: 063
     Dates: start: 20120831
  7. MORPHINE [Suspect]
     Indication: DRUG WITHDRAWAL SYNDROME NEONATAL
     Dosage: DOSING DETAILS UNKOWN
     Route: 065
     Dates: start: 201209, end: 201209

REACTIONS (6)
  - Foetal exposure during pregnancy [Recovered/Resolved]
  - Tremor neonatal [Recovered/Resolved]
  - Exposure during breast feeding [Not Recovered/Not Resolved]
  - Crying [Recovered/Resolved]
  - Drug withdrawal syndrome neonatal [Recovered/Resolved]
  - Insomnia [Not Recovered/Not Resolved]
